FAERS Safety Report 4397540-0 (Version None)
Quarter: 2004Q2

REPORT INFORMATION
  Report Type: 
  Country: None (occurrence: None)
  Receive Date: 20040621
  Receipt Date: 20040107
  Transmission Date: 20050107
  Serious: Yes (Hospitalization, Other)
  Sender: FDA-Public Use
  Company Number: USA-2004-0012376

PATIENT
  Age: 47 Year
  Sex: Female
  Weight: 152.4 kg

DRUGS (20)
  1. OXYCONTIN [Suspect]
     Indication: PAIN
     Dosage: 40 MG, BID; ORAL
     Route: 048
  2. METHADONE HCL [Suspect]
     Dosage: 10 MG, BID; ORAL
     Route: 048
  3. AVAPRO [Concomitant]
  4. SYNTHROID [Concomitant]
  5. CLONIDINE HCL [Concomitant]
  6. PREMARIN [Concomitant]
  7. LASIX [Concomitant]
  8. POTASSIUM [Concomitant]
  9. ALPHABETIC [Concomitant]
  10. SURFAK [Concomitant]
  11. TUMS [Concomitant]
  12. VIOXX [Concomitant]
  13. PRINIVIL [Concomitant]
  14. PROTONIX [Concomitant]
  15. ALBUTEROL [Concomitant]
  16. ATROVENT [Concomitant]
  17. KLOTRIX [Concomitant]
  18. ATIVAN [Concomitant]
  19. LORCET-HD [Concomitant]
  20. CELEBREX [Concomitant]

REACTIONS (17)
  - ABDOMINAL DISTENSION [None]
  - ABDOMINAL PAIN [None]
  - ANXIETY [None]
  - BLOOD PRESSURE INCREASED [None]
  - CONSTIPATION [None]
  - COUGH [None]
  - DEPRESSION [None]
  - DRUG DEPENDENCE [None]
  - DRUG TOLERANCE [None]
  - DRUG WITHDRAWAL SYNDROME [None]
  - DYSPNOEA [None]
  - FEELING ABNORMAL [None]
  - GASTROOESOPHAGEAL REFLUX DISEASE [None]
  - HOARSENESS [None]
  - MEMORY IMPAIRMENT [None]
  - PAIN [None]
  - SINUSITIS [None]
